FAERS Safety Report 11152621 (Version 3)
Quarter: 2015Q4

REPORT INFORMATION
  Report Type: Spontaneous
  Country: US (occurrence: US)
  Receive Date: 20150601
  Receipt Date: 20151030
  Transmission Date: 20160304
  Serious: Yes (Hospitalization)
  Sender: FDA-Public Use
  Company Number: US-PFIZER INC-2015179993

PATIENT
  Age: 93 Year
  Sex: Female

DRUGS (2)
  1. MYSOLINE [Concomitant]
     Active Substance: PRIMIDONE
     Dosage: UNK
     Dates: start: 1952
  2. DILANTIN [Suspect]
     Active Substance: PHENYTOIN
     Indication: SEIZURE
     Dosage: 100 MG, 2X/DAY
     Dates: start: 1952

REACTIONS (1)
  - Myocardial infarction [Unknown]

NARRATIVE: CASE EVENT DATE: 20150513
